FAERS Safety Report 4423638-4 (Version None)
Quarter: 2004Q3

REPORT INFORMATION
  Report Type: 
  Country: None (occurrence: None)
  Receive Date: 20040805
  Receipt Date: 20040721
  Transmission Date: 20050211
  Serious: Yes (Other)
  Sender: FDA-Public Use
  Company Number: 203482

PATIENT
  Age: 13 Year
  Sex: Female
  Weight: 47 kg

DRUGS (3)
  1. NORDITROPIN [Suspect]
     Indication: TURNER'S SYNDROME
     Dosage: 13.5 IU, QD, SUBCUTANEOUS
     Route: 058
     Dates: start: 19900102
  2. OESTRADIOL [Concomitant]
  3. CORTICOSTEROIDS, DERMATOLOGICAL PREPARAT [Concomitant]

REACTIONS (2)
  - TOOTH DISORDER [None]
  - TOOTH RESORPTION [None]
